FAERS Safety Report 4300930-5 (Version None)
Quarter: 2004Q1

REPORT INFORMATION
  Report Type: 
  Country: None (occurrence: None)
  Receive Date: 20040219
  Receipt Date: 20040210
  Transmission Date: 20041129
  Serious: Yes (Death)
  Sender: FDA-Public Use
  Company Number: 2002136114JP

PATIENT
  Age: 53 Year
  Sex: Male
  Weight: 46.7 kg

DRUGS (18)
  1. ZYVOX [Suspect]
     Indication: BACTERAEMIA
     Dosage: 600 MG, BID, IV
     Route: 042
     Dates: start: 20021111, end: 20021123
  2. TEICOPLANIN [Concomitant]
  3. VANCOMYCIN HCL [Concomitant]
  4. FOSFOMYCIN SODIUM SOLUTION [Concomitant]
  5. HABEKACIN (ARBEKACIN) SOLUTION [Concomitant]
  6. MINOMYCIN SOLUTION [Concomitant]
  7. TIENAM (IMIPENEM, CILASTATIN) SOLUTION [Concomitant]
  8. PREDONINE SOLUTION [Concomitant]
  9. ADONA (CARBAZOCHROME SODIUM SULFONATE) SOLUTION [Concomitant]
  10. ALBUMIN NORMAL HUMAN SERUM SOLUTION [Concomitant]
  11. MORPHINE HYDROCHLORIDE (MORPHINE HYDROCHLORIDE) SOLUTION [Concomitant]
  12. POLARAMINE [Concomitant]
  13. LENDORMIN (BROTIZOLAM) TABLET [Concomitant]
  14. PONTAL (MEFENAMIC ACID) SYRUP [Concomitant]
  15. HARNAL (TAMSULOSIN HYDROCHLORIDE) CAPSULE [Concomitant]
  16. CYTOTEC TABLET [Concomitant]
  17. SELBEX (TEPRENONE) [Concomitant]
  18. DASEN (SERRAPEPTASE) [Concomitant]

REACTIONS (3)
  - DRUG INEFFECTIVE [None]
  - PNEUMONIA BACTERIAL [None]
  - PNEUMONIA KLEBSIELLA [None]
